FAERS Safety Report 25077297 (Version 2)
Quarter: 2025Q1

REPORT INFORMATION
  Report Type: Spontaneous
  Country: US (occurrence: US)
  Receive Date: 20250314
  Receipt Date: 20250320
  Transmission Date: 20250409
  Serious: No
  Sender: ABBVIE
  Company Number: US-ABBVIE-6177662

PATIENT
  Sex: Female

DRUGS (1)
  1. VRAYLAR [Suspect]
     Active Substance: CARIPRAZINE
     Indication: Major depression
     Route: 048

REACTIONS (4)
  - Joint stiffness [Not Recovered/Not Resolved]
  - Off label use [Unknown]
  - Parkinsonian gait [Not Recovered/Not Resolved]
  - Fibromyalgia [Unknown]
